FAERS Safety Report 9563855 (Version 1)
Quarter: 2013Q3

REPORT INFORMATION
  Report Type: Spontaneous
  Country: US (occurrence: None)
  Receive Date: 20130926
  Receipt Date: 20130926
  Transmission Date: 20140515
  Serious: Yes (Other)
  Sender: FDA-Public Use
  Company Number: None

PATIENT
  Age: 52 Year
  Sex: Female
  Weight: 68.04 kg

DRUGS (1)
  1. AVELOX [Suspect]
     Indication: RESPIRATORY TRACT INFECTION
     Route: 048
     Dates: start: 20110902, end: 20130905

REACTIONS (2)
  - Arthralgia [None]
  - Gait disturbance [None]
